FAERS Safety Report 6511919-X (Version None)
Quarter: 2009Q4

REPORT INFORMATION
  Report Type: 
  Country: None (occurrence: None)
  Receive Date: 20091222
  Receipt Date: 20090625
  Transmission Date: 20100525
  Serious: No
  Sender: FDA-Public Use
  Company Number: US-ASTRAZENECA-2009UW17814

PATIENT
  Age: 60 Year
  Sex: Male
  Weight: 90.7 kg

DRUGS (11)
  1. CRESTOR [Suspect]
     Route: 048
     Dates: start: 20090301
  2. COREG [Concomitant]
  3. COUMADIN [Concomitant]
  4. PREVACID [Concomitant]
  5. NIACIN [Concomitant]
  6. LISINOPRIL [Concomitant]
  7. FLUOXETINE [Concomitant]
  8. COQ10 [Concomitant]
  9. FISH OIL [Concomitant]
  10. MULTI-GEN [Concomitant]
  11. MULTI-VITAMIN [Concomitant]

REACTIONS (1)
  - DIARRHOEA [None]
